FAERS Safety Report 10058231 (Version 1)
Quarter: 2014Q2

REPORT INFORMATION
  Report Type: Report from Study
  Country: CA (occurrence: CA)
  Receive Date: 20140404
  Receipt Date: 20140404
  Transmission Date: 20141212
  Serious: Yes (Hospitalization, Other)
  Sender: FDA-Public Use
  Company Number: CA-JNJFOC-20140319186

PATIENT
  Age: 76 Year
  Sex: Male
  Weight: 87 kg

DRUGS (12)
  1. REMICADE [Suspect]
     Indication: RHEUMATOID ARTHRITIS
     Route: 042
     Dates: start: 20071122
  2. METHOTREXATE [Concomitant]
     Route: 048
  3. PLAQUENIL [Concomitant]
     Route: 065
  4. PREDNISONE [Concomitant]
     Route: 065
  5. VITAMIN D [Concomitant]
     Route: 065
  6. FOLIC ACID [Concomitant]
     Route: 065
  7. OXYCONTIN [Concomitant]
     Dosage: PRN (AS NECESSARY)
     Route: 065
  8. LOSEC [Concomitant]
     Route: 065
  9. PAXIL [Concomitant]
     Route: 065
  10. ACTONEL [Concomitant]
     Route: 065
  11. CALCIUM [Concomitant]
     Route: 065
  12. ATENOLOL [Concomitant]
     Route: 048

REACTIONS (3)
  - Renal disorder [Unknown]
  - Pneumonia [Unknown]
  - Cardiac failure congestive [Unknown]
